FAERS Safety Report 21445198 (Version 1)
Quarter: 2022Q4

REPORT INFORMATION
  Report Type: Spontaneous
  Country: US (occurrence: None)
  Receive Date: 20221011
  Receipt Date: 20221011
  Transmission Date: 20230113
  Serious: Yes (Other)
  Sender: FDA-Public Use
  Company Number: None

PATIENT
  Age: 40 Year
  Sex: Male
  Weight: 81.65 kg

DRUGS (2)
  1. VUITY [Suspect]
     Active Substance: PILOCARPINE HYDROCHLORIDE
     Indication: Presbyopia
     Dosage: FREQUENCY : DAILY;?
     Route: 061
  2. DEVICE [Suspect]
     Active Substance: DEVICE
     Dates: start: 20220817, end: 20220817

REACTIONS (2)
  - Pseudomyopia [None]
  - Device dislocation [None]

NARRATIVE: CASE EVENT DATE: 20220817
